FAERS Safety Report 9057139 (Version 1)
Quarter: 2013Q1

REPORT INFORMATION
  Report Type: Report from Study
  Country: US (occurrence: US)
  Receive Date: 20130131
  Receipt Date: 20130131
  Transmission Date: 20140127
  Serious: No
  Sender: FDA-Public Use
  Company Number: US-ABBOTT-12P-163-0995796-00

PATIENT
  Age: 46 Year
  Sex: Male

DRUGS (4)
  1. HUMIRA [Suspect]
     Indication: CROHN^S DISEASE
     Dosage: 80MG LOADING DOSE DUE 15 OCT 2012 AS PRESCRIBED
     Dates: start: 20121001
  2. DICYCLOMINE [Concomitant]
     Indication: IRRITABLE BOWEL SYNDROME
  3. DEXILANT [Concomitant]
     Indication: GASTROOESOPHAGEAL REFLUX DISEASE
  4. PREDNISONE [Concomitant]
     Indication: ARTHRITIS
     Dosage: 3 TABS DAILY

REACTIONS (2)
  - Product packaging quantity issue [Unknown]
  - Drug dispensing error [Unknown]
